FAERS Safety Report 5758078-9 (Version None)
Quarter: 2008Q2

REPORT INFORMATION
  Report Type: 
  Country: None (occurrence: None)
  Receive Date: 20080602
  Receipt Date: 20080602
  Transmission Date: 20081010
  Serious: Yes (Other)
  Sender: FDA-Public Use
  Company Number: None

PATIENT
  Sex: Female
  Weight: 63.5036 kg

DRUGS (1)
  1. NITROFURANTOIN 100 MG EON LABS [Suspect]
     Indication: CYSTITIS
     Dosage: ONE CAPSULE TWICE A DAY PO
     Route: 048
     Dates: start: 20080527, end: 20080528

REACTIONS (8)
  - BODY TEMPERATURE INCREASED [None]
  - CHEST DISCOMFORT [None]
  - CHILLS [None]
  - CONFUSIONAL STATE [None]
  - COUGH [None]
  - DYSPNOEA [None]
  - SOMNOLENCE [None]
  - TREMOR [None]
